FAERS Safety Report 7430285-9 (Version None)
Quarter: 2011Q2

REPORT INFORMATION
  Report Type: 
  Country: None (occurrence: None)
  Receive Date: 20110421
  Receipt Date: 20110411
  Transmission Date: 20111010
  Serious: Yes (Hospitalization, Other)
  Sender: FDA-Public Use
  Company Number: US-NAPPMUNDI-USA-2010-0060898

PATIENT
  Sex: Female

DRUGS (4)
  1. APIXABAN [Suspect]
     Indication: THROMBOSIS PROPHYLAXIS
     Dosage: 10 MG, DAILY
     Route: 048
     Dates: start: 20080616
  2. WARFARIN SODIUM [Suspect]
     Indication: THROMBOSIS PROPHYLAXIS
     Dosage: 4 MG, DAILY
     Route: 048
     Dates: start: 20080616
  3. PLACEBO [Suspect]
     Indication: THROMBOSIS PROPHYLAXIS
     Dosage: UNK
     Route: 048
     Dates: start: 20080616
  4. DILAUDID [Suspect]
     Indication: PAIN

REACTIONS (5)
  - RESPIRATORY FAILURE [None]
  - BACK PAIN [None]
  - SEPSIS [None]
  - PLEURAL EFFUSION [None]
  - HYPOTENSION [None]
